FAERS Safety Report 9773381 (Version 3)
Quarter: 2014Q1

REPORT INFORMATION
  Report Type: Spontaneous
  Country: JP (occurrence: JP)
  Receive Date: 20131219
  Receipt Date: 20140313
  Transmission Date: 20141002
  Serious: Yes (Hospitalization)
  Sender: FDA-Public Use
  Company Number: JP-BAXTER-2013BAX050688

PATIENT
  Sex: Male

DRUGS (2)
  1. DIANEAL-N PD-2 1.5 PD SOLUTION [Suspect]
     Indication: RENAL FAILURE CHRONIC
     Route: 033
     Dates: start: 20130508
  2. EXTRANEAL PD SOLUTION [Suspect]
     Indication: RENAL FAILURE CHRONIC
     Route: 033
     Dates: start: 20130508

REACTIONS (2)
  - Fall [Unknown]
  - Fracture [Recovered/Resolved]
